FAERS Safety Report 7592743-6 (Version None)
Quarter: 2011Q3

REPORT INFORMATION
  Report Type: 
  Country: None (occurrence: None)
  Receive Date: 20110706
  Receipt Date: 20110630
  Transmission Date: 20111222
  Serious: Yes (Hospitalization, Disabling, Other)
  Sender: FDA-Public Use
  Company Number: US-PFIZER INC-2011072007

PATIENT
  Sex: Male

DRUGS (7)
  1. LISINOPRIL [Concomitant]
     Indication: HYPERTENSION
     Dosage: UNK
     Dates: start: 20070101, end: 20101001
  2. LORAZEPAM [Concomitant]
     Indication: ANXIETY
     Dosage: UNK
     Dates: start: 20070101, end: 20101001
  3. OMEPRAZOLE [Concomitant]
     Indication: GASTROOESOPHAGEAL REFLUX DISEASE
     Dosage: UNK
     Dates: start: 20070101, end: 20101001
  4. SIMVASTATIN [Concomitant]
     Indication: BLOOD CHOLESTEROL INCREASED
     Dosage: UNK
     Dates: start: 20070101, end: 20101001
  5. DULOXETINE [Concomitant]
     Indication: DEPRESSION
     Dosage: UNK
     Dates: start: 20070101, end: 20101001
  6. CHANTIX [Suspect]
     Indication: SMOKING CESSATION THERAPY
     Dosage: UNK
     Dates: start: 20080301, end: 20080901
  7. VENLAFAXINE [Concomitant]
     Indication: DEPRESSION
     Dosage: UNK
     Dates: start: 20070101, end: 20101001

REACTIONS (2)
  - CONVULSION [None]
  - BACK PAIN [None]
